FAERS Safety Report 17830068 (Version 1)
Quarter: 2020Q2

REPORT INFORMATION
  Report Type: Spontaneous
  Country: IE (occurrence: IE)
  Receive Date: 20200527
  Receipt Date: 20200527
  Transmission Date: 20200714
  Serious: Yes (Other)
  Sender: FDA-Public Use
  Company Number: IE-HORIZON-VIM-0102-2020

PATIENT
  Age: 50 Year
  Sex: Female

DRUGS (1)
  1. VIMOVO [Suspect]
     Active Substance: ESOMEPRAZOLE MAGNESIUM\NAPROXEN
     Indication: MUSCULOSKELETAL PAIN
     Dosage: 500MG/20MG T TWICE DAILY AS NEEDED. SINGLE DOSE TAKEN
     Route: 048
     Dates: start: 20200507, end: 20200507

REACTIONS (3)
  - Palpitations [Recovered/Resolved]
  - Urticaria [Recovered/Resolved]
  - Skin tightness [Recovered/Resolved]

NARRATIVE: CASE EVENT DATE: 20200507
